FAERS Safety Report 10372974 (Version 2)
Quarter: 2014Q3

REPORT INFORMATION
  Report Type: Spontaneous
  Country: US (occurrence: US)
  Receive Date: 20140808
  Receipt Date: 20140808
  Transmission Date: 20150326
  Serious: No
  Sender: FDA-Public Use
  Company Number: US-BRISTOL-MYERS SQUIBB COMPANY-19887587

PATIENT
  Sex: Male

DRUGS (1)
  1. SPRYCEL [Suspect]
     Active Substance: DASATINIB
     Dosage: DOSE WAS LOWERED TO 70 MG

REACTIONS (4)
  - Dyspnoea [Unknown]
  - Facial pain [Unknown]
  - Chest discomfort [Unknown]
  - Nasopharyngitis [Unknown]
